FAERS Safety Report 4810061-3 (Version None)
Quarter: 2005Q4

REPORT INFORMATION
  Report Type: 
  Country: None (occurrence: None)
  Receive Date: 20051024
  Receipt Date: 20051013
  Transmission Date: 20060501
  Serious: Yes (Hospitalization, Other)
  Sender: FDA-Public Use
  Company Number: GB-SHR-03-007935

PATIENT
  Age: 42 Year
  Sex: Female

DRUGS (2)
  1. MIRENA [Suspect]
     Indication: MENORRHAGIA
     Dosage: 20 UG, CONT, INTRA-UTERINE
     Route: 015
     Dates: start: 20030425, end: 20030522
  2. PAROXETINE HCL [Concomitant]

REACTIONS (10)
  - ABDOMINAL WALL CYST [None]
  - ADHESION [None]
  - DEVICE FAILURE [None]
  - DISCOMFORT [None]
  - EMOTIONAL DISTRESS [None]
  - NODULE [None]
  - PAIN [None]
  - PELVIC INFLAMMATORY DISEASE [None]
  - RECTAL PERFORATION [None]
  - UTERINE PERFORATION [None]
